FAERS Safety Report 8029230-7 (Version None)
Quarter: 2012Q1

REPORT INFORMATION
  Report Type: 
  Country: None (occurrence: None)
  Receive Date: 20120106
  Receipt Date: 20120105
  Transmission Date: 20120608
  Serious: Yes (Death, Other)
  Sender: FDA-Public Use
  Company Number: PHEH2009US07737

PATIENT
  Sex: Female

DRUGS (8)
  1. LORTAB [Concomitant]
  2. KEFLEX [Concomitant]
  3. XALATAN [Concomitant]
  4. ZOMETA [Suspect]
     Dosage: UNK UKN, QMO
  5. CLEOCIN HYDROCHLORIDE [Concomitant]
  6. HYDROCODIN [Concomitant]
  7. FENTANYL [Concomitant]
  8. MIDAZOLAM                               /USA/ [Concomitant]

REACTIONS (12)
  - OSTEONECROSIS OF JAW [None]
  - INJURY [None]
  - METASTATIC RENAL CELL CARCINOMA [None]
  - EXPOSED BONE IN JAW [None]
  - METASTASES TO BONE [None]
  - WEIGHT DECREASED [None]
  - TONGUE ULCERATION [None]
  - MASTICATION DISORDER [None]
  - DENTAL CARIES [None]
  - TOOTH FRACTURE [None]
  - HYPERTENSION [None]
  - ANXIETY [None]
